FAERS Safety Report 4564046-5 (Version None)
Quarter: 2005Q1

REPORT INFORMATION
  Report Type: 
  Country: None (occurrence: None)
  Receive Date: 20050128
  Receipt Date: 20041115
  Transmission Date: 20050727
  Serious: No
  Sender: FDA-Public Use
  Company Number: US-BRISTOL-MYERS SQUIBB COMPANY-12766051

PATIENT
  Age: 34 Year
  Sex: Female
  Weight: 73 kg

DRUGS (2)
  1. CEFZIL [Suspect]
     Indication: KIDNEY INFECTION
     Dosage: TOOK 1 500 MG TAB IN APR-2004, ONE 500 MG TAB IN NOV-2004
     Route: 048
     Dates: start: 20040401, end: 20041101
  2. LAMICTAL [Concomitant]

REACTIONS (5)
  - DIARRHOEA [None]
  - GASTROINTESTINAL INFECTION [None]
  - HAEMATOCHEZIA [None]
  - NAUSEA [None]
  - VOMITING [None]
